FAERS Safety Report 4945097-5 (Version None)
Quarter: 2006Q1

REPORT INFORMATION
  Report Type: 
  Country: None (occurrence: None)
  Receive Date: 20060314
  Receipt Date: 20060314
  Transmission Date: 20060701
  Serious: No
  Sender: FDA-Public Use
  Company Number: None

PATIENT
  Sex: Male
  Weight: 90.7194 kg

DRUGS (1)
  1. ROCEPHIN [Suspect]
     Indication: CELLULITIS
     Dates: start: 20060309, end: 20060313

REACTIONS (1)
  - DRUG ERUPTION [None]
